FAERS Safety Report 8171650-4 (Version None)
Quarter: 2012Q1

REPORT INFORMATION
  Report Type: 
  Country: None (occurrence: None)
  Receive Date: 20120228
  Receipt Date: 20120217
  Transmission Date: 20120608
  Serious: Yes (Hospitalization)
  Sender: FDA-Public Use
  Company Number: US-BAYER-2010-006403

PATIENT
  Age: 30 Year
  Sex: Female
  Weight: 94.059 kg

DRUGS (7)
  1. YASMIN [Suspect]
     Dosage: UNK
     Route: 048
     Dates: start: 20080827, end: 20090128
  2. YAZ [Suspect]
     Indication: ORAL CONTRACEPTION
     Dosage: UNK
     Route: 048
     Dates: start: 20080107, end: 20080827
  3. METFORMIN HCL [Concomitant]
     Indication: POLYCYSTIC OVARIES
     Dosage: 100 MG, BID
     Route: 048
     Dates: start: 20061001, end: 20090114
  4. METRONIDAZOLE [Concomitant]
     Indication: INFECTION
     Dosage: 500 MG, UNK
     Route: 048
     Dates: start: 20081016, end: 20090128
  5. OXYCODONE HCL [Concomitant]
     Dosage: 5 MG, UNK
     Dates: start: 20090223
  6. FLUCONAZOLE [Concomitant]
     Indication: ANTIFUNGAL TREATMENT
     Dosage: 150 MG, UNK
     Route: 048
  7. DROSPIRENONE AND ETHINYL ESTRADIOL [Suspect]
     Indication: ORAL CONTRACEPTION
     Dosage: UNK
     Route: 048
     Dates: start: 20090128

REACTIONS (1)
  - PULMONARY EMBOLISM [None]
